FAERS Safety Report 5247459-8 (Version None)
Quarter: 2007Q1

REPORT INFORMATION
  Report Type: 
  Country: None (occurrence: None)
  Receive Date: 20070227
  Receipt Date: 20070222
  Transmission Date: 20070707
  Serious: Yes (Hospitalization)
  Sender: FDA-Public Use
  Company Number: US-BRISTOL-MYERS SQUIBB COMPANY-13633730

PATIENT
  Age: 56 Year
  Sex: Male

DRUGS (1)
  1. DEFINITY [Suspect]
     Indication: ECHOCARDIOGRAM
     Dosage: 3CC OF A DILUTED 10CC SYRINGE
     Route: 042
     Dates: start: 20060914, end: 20060914

REACTIONS (4)
  - LIP SWELLING [None]
  - LOCAL SWELLING [None]
  - SWELLING FACE [None]
  - URTICARIA [None]
